FAERS Safety Report 24108317 (Version 5)
Quarter: 2024Q4

REPORT INFORMATION
  Report Type: Report from Study
  Country: US (occurrence: US)
  Receive Date: 20240718
  Receipt Date: 20241114
  Transmission Date: 20250114
  Serious: Yes (Hospitalization, Other)
  Sender: ABBVIE
  Company Number: US-ABBVIE-5842504

PATIENT
  Age: 76 Year
  Sex: Female
  Weight: 52 kg

DRUGS (10)
  1. SKYRIZI [Suspect]
     Active Substance: RISANKIZUMAB-RZAA
     Indication: Crohn^s disease
     Dosage: DOSE: 360 MG/ 2.4 ML
     Route: 058
     Dates: start: 20240415, end: 20240609
  2. SKYRIZI [Suspect]
     Active Substance: RISANKIZUMAB-RZAA
     Dosage: DOSE: 360 MG/ 2.4 ML
     Route: 058
     Dates: start: 20240626
  3. SKYRIZI [Suspect]
     Active Substance: RISANKIZUMAB-RZAA
     Dosage: DOSE: 360 MG/ 2.4 ML
     Route: 058
     Dates: start: 20221215, end: 20240504
  4. SKYRIZI [Suspect]
     Active Substance: RISANKIZUMAB-RZAA
     Indication: Crohn^s disease
     Dosage: FORM STRENGTH: 600 MILLIGRAM ?FREQUENCY TEXT: WEEK 4
     Route: 042
     Dates: start: 20221013, end: 20221013
  5. SKYRIZI [Suspect]
     Active Substance: RISANKIZUMAB-RZAA
     Indication: Crohn^s disease
     Dosage: FORM STRENGTH: 600 MILLIGRAM ?FREQUENCY TEXT: WEEK 8
     Route: 042
     Dates: start: 20221117, end: 20221117
  6. SKYRIZI [Suspect]
     Active Substance: RISANKIZUMAB-RZAA
     Indication: Crohn^s disease
     Dosage: FORM STRENGTH: 600 MILLIGRAM ?FREQUENCY TEXT: WEEK 0
     Route: 042
     Dates: start: 20220915, end: 20220915
  7. RECLAST [Concomitant]
     Active Substance: ZOLEDRONIC ACID
     Indication: Osteoporosis
     Route: 042
     Dates: start: 20240327
  8. VITAMIN B12 [Concomitant]
     Active Substance: CYANOCOBALAMIN
     Indication: Product used for unknown indication
  9. SINGULAIR [Concomitant]
     Active Substance: MONTELUKAST SODIUM
     Indication: Hypersensitivity
     Dosage: FORM STRENGTH: 10 MILLIGRAM
  10. CALCITRIOL [Concomitant]
     Active Substance: CALCITRIOL
     Indication: Osteoporosis
     Dosage: FORM STRENGTH: 0.25 MICROGRAM

REACTIONS (10)
  - Intestinal perforation [Recovering/Resolving]
  - Abdominal pain upper [Recovering/Resolving]
  - Short-bowel syndrome [Unknown]
  - Vomiting [Recovered/Resolved]
  - Fatigue [Recovering/Resolving]
  - Oral candidiasis [Recovering/Resolving]
  - Blood pressure increased [Not Recovered/Not Resolved]
  - Nausea [Recovering/Resolving]
  - Large intestine perforation [Unknown]
  - Volvulus [Unknown]

NARRATIVE: CASE EVENT DATE: 20240601
